FAERS Safety Report 23362532 (Version 3)
Quarter: 2024Q1

REPORT INFORMATION
  Report Type: Spontaneous
  Country: GB (occurrence: GB)
  Receive Date: 20240103
  Receipt Date: 20240325
  Transmission Date: 20240410
  Serious: Yes (Hospitalization)
  Sender: FDA-Public Use
  Company Number: GB-MYLANLABS-2023M1138699

PATIENT
  Sex: Male

DRUGS (2)
  1. CLOZARIL [Suspect]
     Active Substance: CLOZAPINE
     Indication: Schizophrenia
     Dosage: UNK
     Route: 048
     Dates: start: 20010701
  2. CLOZARIL [Suspect]
     Active Substance: CLOZAPINE
     Dosage: 300 MILLIGRAM, QD (100 MG IN MORNING AND 200 MG IN EVENING)
     Route: 048
     Dates: start: 20240227

REACTIONS (4)
  - Schizophrenia [Unknown]
  - Malaise [Unknown]
  - Urinary tract infection [Unknown]
  - Treatment noncompliance [Unknown]
